FAERS Safety Report 9752453 (Version 3)
Quarter: 2014Q1

REPORT INFORMATION
  Report Type: Spontaneous
  Country: US (occurrence: US)
  Receive Date: 20131213
  Receipt Date: 20140128
  Transmission Date: 20141002
  Serious: No
  Sender: FDA-Public Use
  Company Number: US-009507513-1312USA002486

PATIENT
  Age: 35 Year
  Sex: Female
  Weight: 104.31 kg

DRUGS (3)
  1. JANUVIA [Suspect]
     Indication: TYPE 2 DIABETES MELLITUS
     Dosage: 100 MG, QD
     Route: 048
  2. JANUMET XR [Suspect]
     Indication: DIABETES MELLITUS
     Dosage: UNK
     Route: 048
     Dates: start: 20130507, end: 20140105
  3. INDAPAMIDE [Concomitant]

REACTIONS (2)
  - Alopecia [Recovered/Resolved]
  - Overdose [Unknown]
